FAERS Safety Report 11713468 (Version 1)
Quarter: 2015Q4

REPORT INFORMATION
  Report Type: Spontaneous
  Country: US (occurrence: US)
  Receive Date: 20151109
  Receipt Date: 20151109
  Transmission Date: 20160304
  Serious: No
  Sender: FDA-Public Use
  Company Number: US-ASTRAZENECA-2015SF04652

PATIENT
  Sex: Female

DRUGS (3)
  1. FURESOMIDE -LASIX [Concomitant]
     Indication: FLUID RETENTION
  2. PROAIR HFA [Concomitant]
     Active Substance: ALBUTEROL SULFATE
     Indication: RESPIRATORY DISORDER
     Dosage: EVERY 4 - 6 HOURS
  3. TUDORZA PRESSAIR [Suspect]
     Active Substance: ACLIDINIUM BROMIDE
     Indication: CHRONIC OBSTRUCTIVE PULMONARY DISEASE
     Route: 055
     Dates: start: 2012

REACTIONS (4)
  - Intentional device misuse [Unknown]
  - Drug dose omission [Unknown]
  - Sciatica [Unknown]
  - Weight increased [Unknown]
